FAERS Safety Report 9481902 (Version 5)
Quarter: 2014Q2

REPORT INFORMATION
  Report Type: Report from Study
  Country: US (occurrence: US)
  Receive Date: 20130828
  Receipt Date: 20140522
  Transmission Date: 20141212
  Serious: Yes (Other)
  Sender: FDA-Public Use
  Company Number: US-ROCHE-1265649

PATIENT
  Sex: Male

DRUGS (2)
  1. CELLCEPT [Suspect]
     Indication: RENAL TRANSPLANT
     Dosage: 500 MG 2 TABLETS TWICE DAILY
     Route: 048
  2. CELLCEPT [Suspect]
     Dosage: 500 MG 1 TABLET TWICE DAILY
     Route: 048

REACTIONS (1)
  - Hip surgery [Unknown]
